FAERS Safety Report 24279320 (Version 2)
Quarter: 2024Q3

REPORT INFORMATION
  Report Type: Spontaneous
  Country: AU (occurrence: AU)
  Receive Date: 20240903
  Receipt Date: 20240905
  Transmission Date: 20241017
  Serious: Yes (Other)
  Sender: MERCK
  Company Number: AU-ROCHE-3534792

PATIENT
  Age: 81 Year
  Sex: Male
  Weight: 69.75 kg

DRUGS (16)
  1. PEMBROLIZUMAB [Suspect]
     Active Substance: PEMBROLIZUMAB
     Indication: Non-small cell lung cancer
     Dosage: UNK UNK, Q3W
     Route: 042
     Dates: start: 20231222
  2. PEMETREXED [Suspect]
     Active Substance: PEMETREXED
     Indication: Non-small cell lung cancer
     Dosage: 925 MILLIGRAM, Q3W
     Route: 042
     Dates: start: 20231222
  3. CARBOPLATIN [Suspect]
     Active Substance: CARBOPLATIN
     Indication: Non-small cell lung cancer
     Dosage: 580 MILLIGRAM, Q3W
     Route: 042
     Dates: start: 20231222
  4. TOBEMSTOMIG [Suspect]
     Active Substance: TOBEMSTOMIG
     Indication: Non-small cell lung cancer
     Dosage: UNK
     Route: 042
     Dates: start: 20231222
  5. ATORVASTATIN [Concomitant]
     Active Substance: ATORVASTATIN
  6. TRELEGY ELLIPTA [Concomitant]
     Active Substance: FLUTICASONE FUROATE\UMECLIDINIUM BROMIDE\VILANTEROL TRIFENATATE
  7. OXYCODONE [Concomitant]
     Active Substance: OXYCODONE
  8. DEXAMETHASONE [Concomitant]
     Active Substance: DEXAMETHASONE
  9. NETUPITANT\PALONOSETRON [Concomitant]
     Active Substance: NETUPITANT\PALONOSETRON
  10. FOLIC ACID [Concomitant]
     Active Substance: FOLIC ACID
  11. ONDANSETRON [Concomitant]
     Active Substance: ONDANSETRON
  12. HUMAN RED BLOOD CELL [Concomitant]
     Active Substance: HUMAN RED BLOOD CELL
  13. VITAMIN B12 [Concomitant]
     Active Substance: CYANOCOBALAMIN
  14. ENOXAPARIN [Concomitant]
     Active Substance: ENOXAPARIN
  15. POTASSIUM CHLORIDE [Concomitant]
     Active Substance: POTASSIUM CHLORIDE
  16. TRIMETHOPRIM [Concomitant]
     Active Substance: TRIMETHOPRIM

REACTIONS (1)
  - Acute kidney injury [Not Recovered/Not Resolved]

NARRATIVE: CASE EVENT DATE: 20240326
